FAERS Safety Report 5102625-7 (Version None)
Quarter: 2006Q3

REPORT INFORMATION
  Report Type: 
  Country: None (occurrence: None)
  Receive Date: 20060907
  Receipt Date: 20060824
  Transmission Date: 20061208
  Serious: Yes (Other)
  Sender: FDA-Public Use
  Company Number: 2006BH012993

PATIENT
  Age: 64 Year
  Sex: Male

DRUGS (7)
  1. DEXAMETHASONE TAB [Suspect]
     Indication: LYMPHOMA
     Dosage: 40 MG; IVDRI
     Route: 041
  2. ENDOXAN JAPAN (CYCLOPHOSPHAMIDE) [Suspect]
     Indication: LYMPHOMA
     Dosage: 600 MG/M**2; IVDRI
     Route: 041
  3. IFOSFAMIDE [Suspect]
     Indication: LYMPHOMA
     Dosage: 1200 MG/M**2; IVDRI
     Route: 041
  4. CARBOPLATIN [Suspect]
     Indication: LYMPHOMA
     Dosage: 240 MG/M**2; IVDRI
     Route: 041
  5. ETOPOSIDE [Suspect]
     Indication: LYMPHOMA
     Dosage: SEE IMAGE
     Route: 041
  6. CYTARABINE [Suspect]
     Indication: LYMPHOMA
     Dosage: 1000 MG/M**2; IVDRI
     Route: 041
  7. RITUXIMAB (RITUXIMAB) [Suspect]
     Indication: LYMPHOMA
     Dosage: 375 MG/M**2; IVDRP
     Route: 041

REACTIONS (3)
  - NEUTROPHIL COUNT DECREASED [None]
  - SEPSIS [None]
  - WHITE BLOOD CELL COUNT DECREASED [None]
